FAERS Safety Report 4636241-8 (Version None)
Quarter: 2005Q2

REPORT INFORMATION
  Report Type: 
  Country: None (occurrence: None)
  Receive Date: 20050415
  Receipt Date: 20050225
  Transmission Date: 20051028
  Serious: Yes (Death, Other)
  Sender: FDA-Public Use
  Company Number: US-BRISTOL-MYERS SQUIBB COMPANY-11744190

PATIENT

DRUGS (3)
  1. TAXOL [Suspect]
     Indication: COLON CANCER
     Route: 042
  2. PARAPLATIN [Suspect]
     Indication: COLON CANCER
     Route: 042
  3. PLATINOL [Suspect]
     Indication: COLON CANCER
     Route: 042

REACTIONS (3)
  - COLON CANCER [None]
  - DEATH [None]
  - MEDICATION ERROR [None]
